FAERS Safety Report 6147950-6 (Version None)
Quarter: 2009Q2

REPORT INFORMATION
  Report Type: 
  Country: None (occurrence: None)
  Receive Date: 20090408
  Receipt Date: 20090406
  Transmission Date: 20091009
  Serious: Yes (Death)
  Sender: FDA-Public Use
  Company Number: PHEH2009US02864

PATIENT
  Sex: Male

DRUGS (1)
  1. ELIDEL [Suspect]
     Dosage: UNK, UNK

REACTIONS (2)
  - ACUTE LYMPHOCYTIC LEUKAEMIA [None]
  - SEPTIC SHOCK [None]
